FAERS Safety Report 12980572 (Version 3)
Quarter: 2017Q1

REPORT INFORMATION
  Report Type: Spontaneous
  Country: DE (occurrence: DE)
  Receive Date: 20161128
  Receipt Date: 20170217
  Transmission Date: 20170428
  Serious: Yes (Death, Hospitalization)
  Sender: FDA-Public Use
  Company Number: DE-SA-2016SA215585

PATIENT
  Age: 41 Year
  Sex: Female

DRUGS (8)
  1. LEMTRADA [Suspect]
     Active Substance: ALEMTUZUMAB
     Indication: MULTIPLE SCLEROSIS
     Route: 041
     Dates: start: 20140210, end: 20140215
  2. TAZOBAC [Concomitant]
     Active Substance: PIPERACILLIN SODIUM\TAZOBACTAM SODIUM
  3. PRIVIGEN [Concomitant]
     Active Substance: HUMAN IMMUNOGLOBULIN G
  4. LEMTRADA [Suspect]
     Active Substance: ALEMTUZUMAB
     Indication: MULTIPLE SCLEROSIS
     Route: 041
     Dates: start: 20150316, end: 20150318
  5. G-CSF [Concomitant]
     Active Substance: GRANULOCYTE COLONY-STIMULATING FACTOR NOS
     Dosage: DOUBLE DOSAGE
     Dates: start: 20161103, end: 20161103
  6. CORTISONE [Concomitant]
     Active Substance: CORTISONE\HYDROCORTISONE
  7. ANAKINRA [Concomitant]
     Active Substance: ANAKINRA
  8. G-CSF [Concomitant]
     Active Substance: GRANULOCYTE COLONY-STIMULATING FACTOR NOS

REACTIONS (17)
  - Multiple organ dysfunction syndrome [Fatal]
  - Cardiomyopathy [Fatal]
  - Juvenile idiopathic arthritis [Unknown]
  - Neutropenic sepsis [Unknown]
  - Blood lactic acid increased [Unknown]
  - Infection [Unknown]
  - Pyrexia [Unknown]
  - Neutropenic colitis [Unknown]
  - Respiratory failure [Fatal]
  - Left ventricular dysfunction [Fatal]
  - Agranulocytosis [Unknown]
  - Clostridium colitis [Unknown]
  - Ileus paralytic [Unknown]
  - Tachycardia [Unknown]
  - Device breakage [Unknown]
  - Bronchopulmonary aspergillosis [Unknown]
  - Pneumonia pseudomonal [Fatal]

NARRATIVE: CASE EVENT DATE: 2016
